FAERS Safety Report 22140213 (Version 2)
Quarter: 2023Q2

REPORT INFORMATION
  Report Type: Report from Study
  Country: BR (occurrence: BR)
  Receive Date: 20230327
  Receipt Date: 20230601
  Transmission Date: 20230722
  Serious: Yes (Hospitalization, Other)
  Sender: FDA-Public Use
  Company Number: BR-ABBVIE-4214239

PATIENT
  Age: 48 Year
  Sex: Male
  Weight: 90 kg

DRUGS (3)
  1. RINVOQ [Suspect]
     Active Substance: UPADACITINIB
     Indication: Dermatitis atopic
     Dosage: 15 MILLIGRAM
     Route: 048
     Dates: start: 20220531, end: 20230317
  2. NAPROXEN [Suspect]
     Active Substance: NAPROXEN
     Indication: Epicondylitis
  3. NIMESULIDE [Suspect]
     Active Substance: NIMESULIDE
     Indication: Epicondylitis
     Dosage: 3 TIMES A DAY

REACTIONS (11)
  - Gastric ulcer perforation [Recovered/Resolved]
  - Pain [Unknown]
  - Gastric ulcer [Unknown]
  - Pruritus [Recovering/Resolving]
  - Gastrooesophageal reflux disease [Unknown]
  - Skin lesion [Recovering/Resolving]
  - Hypophagia [Unknown]
  - Therapeutic product effect decreased [Recovering/Resolving]
  - Epicondylitis [Unknown]
  - Illness [Unknown]
  - Weight decreased [Unknown]

NARRATIVE: CASE EVENT DATE: 20230303
